FAERS Safety Report 14155280 (Version 1)
Quarter: 2017Q4

REPORT INFORMATION
  Report Type: Spontaneous
  Country: US (occurrence: US)
  Receive Date: 20171103
  Receipt Date: 20171103
  Transmission Date: 20180321
  Serious: Yes (Other)
  Sender: FDA-Public Use
  Company Number: US-JNJCP-30000414417

PATIENT
  Sex: Female

DRUGS (2)
  1. NEUTROGENA PRODUCTS [Suspect]
     Active Substance: UNSPECIFIED INGREDIENT
     Indication: DRY SKIN
     Route: 061
  2. NEUTROGENA RAPID WRINKLE REPAIR SERUM [Suspect]
     Active Substance: COSMETICS
     Indication: SKIN WRINKLING
     Route: 061

REACTIONS (2)
  - Exposure during pregnancy [Recovered/Resolved]
  - Abortion spontaneous [Recovered/Resolved]

NARRATIVE: CASE EVENT DATE: 2008
